FAERS Safety Report 5279073-2 (Version None)
Quarter: 2007Q1

REPORT INFORMATION
  Report Type: 
  Country: None (occurrence: None)
  Receive Date: 20070328
  Receipt Date: 20060808
  Transmission Date: 20070707
  Serious: No
  Sender: FDA-Public Use
  Company Number: US-AMGEN-KDL189364

PATIENT
  Age: 47 Year
  Sex: Female

DRUGS (5)
  1. NEULASTA [Suspect]
     Indication: CHEMOTHERAPY
     Route: 058
     Dates: start: 20060609
  2. GLUCOPHAGE [Concomitant]
  3. DOXORUBICIN HYDROCHLORIDE [Concomitant]
  4. DOCETAXEL [Concomitant]
  5. CYCLOPHOSPHAMIDE [Concomitant]

REACTIONS (6)
  - FEELING HOT [None]
  - OEDEMA PERIPHERAL [None]
  - PAIN [None]
  - PAIN IN EXTREMITY [None]
  - SKIN DISCOLOURATION [None]
  - SKIN EXFOLIATION [None]
